FAERS Safety Report 5635167-0 (Version None)
Quarter: 2008Q1

REPORT INFORMATION
  Report Type: 
  Country: None (occurrence: None)
  Receive Date: 20080131
  Receipt Date: 20071108
  Transmission Date: 20080703
  Serious: No
  Sender: FDA-Public Use
  Company Number: 163-21880-07110612

PATIENT
  Age: 62 Year
  Sex: Female

DRUGS (5)
  1. REVLIMID [Suspect]
     Indication: MULTIPLE MYELOMA
     Dosage: 25 MG FOR 21 DAYS ON THEN 7 DAYS OFF, ORAL
     Route: 048
     Dates: start: 20070709
  2. DEXAMETHASONE TAB [Concomitant]
  3. ESTROGEN (ESTROGEN NOS) (TABLETS) [Concomitant]
  4. PRILOSEC [Concomitant]
  5. ZOLOFT [Concomitant]

REACTIONS (4)
  - DYSPEPSIA [None]
  - FATIGUE [None]
  - RED BLOOD CELL COUNT DECREASED [None]
  - WHITE BLOOD CELL COUNT DECREASED [None]
